FAERS Safety Report 8778922 (Version 1)
Quarter: 2012Q4

REPORT INFORMATION
  Report Type: 
  Country: FR (occurrence: FR)
  Receive Date: 20120910
  Receipt Date: 20120910
  Transmission Date: 20130627
  Serious: Yes (Hospitalization)
  Sender: FDA-Public Use
  Company Number: FR-ELI_LILLY_AND_COMPANY-FR201209001525

PATIENT
  Age: 32 Year
  Sex: Female

DRUGS (3)
  1. PROZAC [Suspect]
     Dosage: 20 mg, qd
     Route: 048
     Dates: start: 20110130
  2. DEPAKINE CHRONO [Concomitant]
     Indication: EPILEPSY
     Dosage: 500 mg, bid
  3. EFFEXOR [Concomitant]
     Indication: POSTPARTUM DEPRESSION
     Dosage: UNK
     Dates: end: 20110130

REACTIONS (2)
  - Streptococcal infection [Unknown]
  - Exposure during pregnancy [Recovered/Resolved]
